FAERS Safety Report 18989320 (Version 2)
Quarter: 2021Q4

REPORT INFORMATION
  Report Type: Spontaneous
  Country: US (occurrence: US)
  Receive Date: 20210309
  Receipt Date: 20211001
  Transmission Date: 20220303
  Serious: Yes (Other)
  Sender: FDA-Public Use
  Company Number: US-GILEAD-2021-0519270

PATIENT
  Age: 52 Year
  Sex: Male
  Weight: 77.56 kg

DRUGS (23)
  1. TRUVADA [Suspect]
     Active Substance: EMTRICITABINE\TENOFOVIR DISOPROXIL FUMARATE
     Indication: HIV infection
     Dosage: UNK
     Route: 048
     Dates: start: 2004, end: 201607
  2. DESCOVY [Concomitant]
     Active Substance: EMTRICITABINE\TENOFOVIR ALAFENAMIDE FUMARATE
  3. JULUCA [Concomitant]
     Active Substance: DOLUTEGRAVIR SODIUM\RILPIVIRINE HYDROCHLORIDE
  4. NORVIR [Concomitant]
     Active Substance: RITONAVIR
  5. REYATAZ [Concomitant]
     Active Substance: ATAZANAVIR SULFATE
  6. TIVICAY [Concomitant]
     Active Substance: DOLUTEGRAVIR SODIUM
  7. AMLODIPINE [Concomitant]
     Active Substance: AMLODIPINE BESYLATE
  8. CLOPIDOGREL [Concomitant]
     Active Substance: CLOPIDOGREL BISULFATE
  9. FINASTERIDE [Concomitant]
     Active Substance: FINASTERIDE
  10. METOPROLOL [Concomitant]
     Active Substance: METOPROLOL
  11. TAMSULOSIN [Concomitant]
     Active Substance: TAMSULOSIN
  12. VITAMIN D3 [Concomitant]
     Active Substance: CHOLECALCIFEROL
  13. VENTOLIN [Concomitant]
     Active Substance: ALBUTEROL SULFATE
  14. TRAZODONE [Concomitant]
     Active Substance: TRAZODONE HYDROCHLORIDE
  15. NITROGLYCERIN [Concomitant]
     Active Substance: NITROGLYCERIN
  16. SIMVASTATIN [Concomitant]
     Active Substance: SIMVASTATIN
  17. AURYXIA [Concomitant]
     Active Substance: TETRAFERRIC TRICITRATE DECAHYDRATE
  18. CALCIROL [CALCIUM CARBONATE;COLECALCIFEROL] [Concomitant]
  19. PHOSLYRA [Concomitant]
     Active Substance: CALCIUM ACETATE
  20. PROCRIT [Concomitant]
     Active Substance: ERYTHROPOIETIN
  21. RENVELA [Concomitant]
     Active Substance: SEVELAMER CARBONATE
  22. LORATADINE [Concomitant]
     Active Substance: LORATADINE
  23. WELLBUTRIN [Concomitant]
     Active Substance: BUPROPION HYDROCHLORIDE

REACTIONS (6)
  - Chronic kidney disease [Not Recovered/Not Resolved]
  - Pain [Not Recovered/Not Resolved]
  - Emotional distress [Not Recovered/Not Resolved]
  - Anxiety [Not Recovered/Not Resolved]
  - Anhedonia [Not Recovered/Not Resolved]
  - Asthenia [Unknown]

NARRATIVE: CASE EVENT DATE: 20130101
